FAERS Safety Report 23644825 (Version 1)
Quarter: 2024Q1

REPORT INFORMATION
  Report Type: Spontaneous
  Country: US (occurrence: None)
  Receive Date: 20240317
  Receipt Date: 20240317
  Transmission Date: 20240410
  Serious: Yes (Life-Threatening, Disabling, Other)
  Sender: FDA-Public Use
  Company Number: None

PATIENT
  Age: 53 Year
  Sex: Female
  Weight: 85.95 kg

DRUGS (14)
  1. OZEMPIC [Suspect]
     Active Substance: SEMAGLUTIDE
     Indication: Diabetes mellitus
     Dosage: OTHER QUANTITY : 4 INJECTION(S);?OTHER FREQUENCY : 1X PER WEEK;?
     Route: 058
  2. XARELTO [Concomitant]
  3. METFORMIN [Concomitant]
  4. FARXIGA [Concomitant]
  5. SEMGLEE [Concomitant]
  6. CLOPIDOGREL [Concomitant]
     Active Substance: CLOPIDOGREL BISULFATE
  7. WARFARIN [Concomitant]
  8. BUPROPION [Concomitant]
  9. DICYCLOMINE [Concomitant]
     Active Substance: DICYCLOMINE HYDROCHLORIDE
  10. ROSUVASTATIN [Concomitant]
  11. ESCITALOPRAM [Concomitant]
  12. PANTOPRAZOLE [Concomitant]
     Active Substance: PANTOPRAZOLE
  13. VITAMIN D3 [Concomitant]
     Active Substance: CHOLECALCIFEROL
  14. Loratidine [Concomitant]

REACTIONS (16)
  - Abdominal discomfort [None]
  - Cardiac disorder [None]
  - Coronary arterial stent insertion [None]
  - Fall [None]
  - Cerebrovascular accident [None]
  - Myocardial infarction [None]
  - Pulmonary embolism [None]
  - Swelling [None]
  - Pain [None]
  - Gastrointestinal disorder [None]
  - Vomiting [None]
  - Loss of employment [None]
  - Dehydration [None]
  - Abdominal distension [None]
  - Intussusception [None]
  - Near death experience [None]

NARRATIVE: CASE EVENT DATE: 20230913
